FAERS Safety Report 12225097 (Version 2)
Quarter: 2016Q2

REPORT INFORMATION
  Report Type: Spontaneous
  Country: US (occurrence: US)
  Receive Date: 20160331
  Receipt Date: 20160411
  Transmission Date: 20160815
  Serious: No
  Sender: FDA-Public Use
  Company Number: US-BAYER-2016-061653

PATIENT
  Age: 87 Year
  Sex: Male
  Weight: 72.11 kg

DRUGS (2)
  1. MIRALAX [Suspect]
     Active Substance: POLYETHYLENE GLYCOL 3350
     Dosage: 1/2 DF, QD
     Route: 048
  2. MILK OF MAGNESIA CHERRY [Suspect]
     Active Substance: MAGNESIUM HYDROXIDE
     Indication: CONSTIPATION
     Dosage: UNK
     Route: 048

REACTIONS (6)
  - Product use issue [None]
  - Abnormal faeces [Not Recovered/Not Resolved]
  - Anorectal disorder [None]
  - Product use issue [None]
  - Drug ineffective [None]
  - Product label issue [None]

NARRATIVE: CASE EVENT DATE: 2011
